FAERS Safety Report 8333595-6 (Version None)
Quarter: 2012Q2

REPORT INFORMATION
  Report Type: 
  Country: None (occurrence: None)
  Receive Date: 20120503
  Receipt Date: 20120430
  Transmission Date: 20120825
  Serious: Yes (Hospitalization)
  Sender: FDA-Public Use
  Company Number: PHHY2012TW037120

PATIENT
  Sex: Male

DRUGS (2)
  1. LAMISIL [Suspect]
     Dosage: 2 TABLETS PER DAY (MORNING AND EVENING)
     Route: 048
     Dates: end: 20120401
  2. LAMISIL [Suspect]
     Indication: SYSTEMIC MYCOSIS
     Dosage: 2 TABLETS PER DAY (MORNING AND EVENING)
     Route: 048
     Dates: start: 20111201, end: 20120401

REACTIONS (4)
  - GASTROENTERITIS [None]
  - DIARRHOEA [None]
  - ASTHENIA [None]
  - ABDOMINAL PAIN [None]
